FAERS Safety Report 6308888-4 (Version None)
Quarter: 2009Q3

REPORT INFORMATION
  Report Type: 
  Country: None (occurrence: None)
  Receive Date: 20090813
  Receipt Date: 20090217
  Transmission Date: 20100115
  Serious: No
  Sender: FDA-Public Use
  Company Number: US-ALLERGAN-0902048US

PATIENT
  Age: 68 Year
  Sex: Female

DRUGS (2)
  1. COMBIGAN [Suspect]
     Indication: GLAUCOMA
     Dosage: UNK, TID
     Route: 047
     Dates: start: 20080801
  2. COMBIGAN [Suspect]
     Dosage: UNK, BID
     Route: 047

REACTIONS (3)
  - EYE IRRITATION [None]
  - EYE PRURITUS [None]
  - EYELID MARGIN CRUSTING [None]
